FAERS Safety Report 6984865 (Version 2)
Quarter: 2014Q2

REPORT INFORMATION
  Report Type: Spontaneous
  Country: US (occurrence: US)
  Receive Date: 20090501
  Receipt Date: 20140415
  Transmission Date: 20141212
  Serious: Yes (Hospitalization, Other)
  Sender: FDA-Public Use
  Company Number: US-ALEXION-A200800337

PATIENT
  Age: 47 Year
  Sex: Male
  Weight: 107 kg

DRUGS (11)
  1. SOLIRIS [Suspect]
     Indication: PAROXYSMAL NOCTURNAL HAEMOGLOBINURIA
     Dosage: 600 MG, QWK
     Route: 042
     Dates: start: 20071213, end: 200811
  2. SOLIRIS [Suspect]
     Dosage: 900 MG, SINGLE
     Route: 042
     Dates: start: 20080110, end: 20080110
  3. SOLIRIS [Suspect]
     Dosage: 900 MG, Q12DAYS
     Route: 042
     Dates: start: 20080401, end: 20081208
  4. COUMADIN                           /00014802/ [Concomitant]
     Dosage: 6 MG, QOD
     Route: 048
  5. COUMADIN                           /00014802/ [Concomitant]
     Dosage: 8 MG, QOD
     Route: 048
  6. FOLIC ACID [Concomitant]
     Dosage: UNK
     Route: 048
  7. IRON [Concomitant]
     Dosage: UNK
     Route: 048
  8. OXYCONTIN [Concomitant]
     Dosage: 60 MG, QD
     Route: 048
  9. PREDNISONE [Concomitant]
     Indication: PAROXYSMAL NOCTURNAL HAEMOGLOBINURIA
     Dosage: 10 MG, QD
     Route: 048
  10. SENOKOT                            /00142201/ [Concomitant]
     Dosage: UNK
     Route: 048
  11. BENADRYL                           /00000402/ [Concomitant]
     Dosage: UNK
     Route: 048

REACTIONS (8)
  - Meningitis [Recovering/Resolving]
  - Photophobia [Recovering/Resolving]
  - Neuropathy peripheral [Recovering/Resolving]
  - Pyrexia [Recovering/Resolving]
  - Headache [Recovering/Resolving]
  - Fall [Unknown]
  - Haemolysis [Unknown]
  - Asthenia [Unknown]
